FAERS Safety Report 4593705-3 (Version None)
Quarter: 2005Q1

REPORT INFORMATION
  Report Type: 
  Country: None (occurrence: None)
  Receive Date: 20050224
  Receipt Date: 20041110
  Transmission Date: 20050727
  Serious: No
  Sender: FDA-Public Use
  Company Number: US-BRISTOL-MYERS SQUIBB COMPANY-12765111

PATIENT
  Age: 20 Year
  Sex: Female

DRUGS (1)
  1. EXCEDRIN (MIGRAINE) [Suspect]
     Dosage: DOSE VALUE: POSSIBLY TAKING AS MANY AS 10 CAPLETS ORALLY.
     Route: 048

REACTIONS (2)
  - OVERDOSE [None]
  - VOMITING [None]
